FAERS Safety Report 6806196-6 (Version None)
Quarter: 2010Q2

REPORT INFORMATION
  Report Type: 
  Country: None (occurrence: None)
  Receive Date: 20100629
  Receipt Date: 20100622
  Transmission Date: 20101027
  Serious: Yes (Hospitalization)
  Sender: FDA-Public Use
  Company Number: US-MERCK-1006USA03639

PATIENT
  Sex: Male

DRUGS (2)
  1. SINGULAIR [Suspect]
     Indication: ASTHMA
     Route: 048
  2. AMIODARONE [Concomitant]
     Route: 065

REACTIONS (3)
  - ALLERGIC GRANULOMATOUS ANGIITIS [None]
  - CARDIAC OUTPUT DECREASED [None]
  - PLATELET COUNT ABNORMAL [None]
